FAERS Safety Report 26113707 (Version 2)
Quarter: 2025Q4

REPORT INFORMATION
  Report Type: Report from Study
  Country: EU (occurrence: EU)
  Receive Date: 20251202
  Receipt Date: 20251215
  Transmission Date: 20260118
  Serious: Yes (Hospitalization, Other)
  Sender: MYLAN
  Company Number: EU-ABBVIE-6525552

PATIENT
  Age: 69 Year
  Sex: Female

DRUGS (28)
  1. CLOZAPINE [Suspect]
     Active Substance: CLOZAPINE
     Indication: Hallucination
     Dosage: 12 MILLIGRAM
     Route: 061
  2. CLOZAPINE [Suspect]
     Active Substance: CLOZAPINE
     Dosage: 12 MILLIGRAM
     Route: 048
  3. CLOZAPINE [Suspect]
     Active Substance: CLOZAPINE
     Dosage: 12 MILLIGRAM
     Route: 048
  4. CLOZAPINE [Suspect]
     Active Substance: CLOZAPINE
     Dosage: 12 MILLIGRAM
     Route: 061
  5. FOSCARBIDOPA\FOSLEVODOPA [Suspect]
     Active Substance: FOSCARBIDOPA\FOSLEVODOPA
     Indication: Parkinson^s disease
     Dosage: DOSAGE: CRN: 0.16 ML/H, CR: 0.18 ML/H, CRH: 0.20 ML/H, ED: 0.10 ML,LAST ADMIN: OCT 2025
  6. FOSCARBIDOPA\FOSLEVODOPA [Suspect]
     Active Substance: FOSCARBIDOPA\FOSLEVODOPA
     Dosage: DOSAGE: CRN: 0.16 ML/H, CR: 0.18 ML/H, CRH: 0.20 ML/H, ED: 0.10 ML,LAST ADMIN: OCT 2025
  7. FOSCARBIDOPA\FOSLEVODOPA [Suspect]
     Active Substance: FOSCARBIDOPA\FOSLEVODOPA
     Dosage: DOSAGE: CRN: 0.16 ML/H, CR: 0.18 ML/H, CRH: 0.20 ML/H, ED: 0.10 ML,LAST ADMIN: OCT 2025
     Route: 058
  8. FOSCARBIDOPA\FOSLEVODOPA [Suspect]
     Active Substance: FOSCARBIDOPA\FOSLEVODOPA
     Dosage: DOSAGE: CRN: 0.16 ML/H, CR: 0.18 ML/H, CRH: 0.20 ML/H, ED: 0.10 ML,LAST ADMIN: OCT 2025
     Route: 058
  9. FOSCARBIDOPA\FOSLEVODOPA [Suspect]
     Active Substance: FOSCARBIDOPA\FOSLEVODOPA
     Dosage: DOSAGE: CRN: 0.16 ML/H, CR: 0.20 ML/H, CRH: 0.22 ML/H, ED: 0.10ML,FIRST AND LAST ADMINI DATE: 2025
  10. FOSCARBIDOPA\FOSLEVODOPA [Suspect]
     Active Substance: FOSCARBIDOPA\FOSLEVODOPA
     Dosage: DOSAGE: CRN: 0.16 ML/H, CR: 0.20 ML/H, CRH: 0.22 ML/H, ED: 0.10ML,FIRST AND LAST ADMINI DATE: 2025
  11. FOSCARBIDOPA\FOSLEVODOPA [Suspect]
     Active Substance: FOSCARBIDOPA\FOSLEVODOPA
     Dosage: DOSAGE: CRN: 0.16 ML/H, CR: 0.20 ML/H, CRH: 0.22 ML/H, ED: 0.10ML,FIRST AND LAST ADMINI DATE: 2025
     Route: 058
  12. FOSCARBIDOPA\FOSLEVODOPA [Suspect]
     Active Substance: FOSCARBIDOPA\FOSLEVODOPA
     Dosage: DOSAGE: CRN: 0.16 ML/H, CR: 0.20 ML/H, CRH: 0.22 ML/H, ED: 0.10ML,FIRST AND LAST ADMINI DATE: 2025
     Route: 058
  13. FOSCARBIDOPA\FOSLEVODOPA [Suspect]
     Active Substance: FOSCARBIDOPA\FOSLEVODOPA
     Dosage: DOSAGE: CR: 0.24ML/H, CRH: 0.26ML/H, CRN: 0.16ML/H,FIRST AND LAST ADMINISTRATION DATE: 2025
  14. FOSCARBIDOPA\FOSLEVODOPA [Suspect]
     Active Substance: FOSCARBIDOPA\FOSLEVODOPA
     Dosage: DOSAGE: CR: 0.24ML/H, CRH: 0.26ML/H, CRN: 0.16ML/H,FIRST AND LAST ADMINISTRATION DATE: 2025
  15. FOSCARBIDOPA\FOSLEVODOPA [Suspect]
     Active Substance: FOSCARBIDOPA\FOSLEVODOPA
     Dosage: DOSAGE: CR: 0.24ML/H, CRH: 0.26ML/H, CRN: 0.16ML/H,FIRST AND LAST ADMINISTRATION DATE: 2025
     Route: 058
  16. FOSCARBIDOPA\FOSLEVODOPA [Suspect]
     Active Substance: FOSCARBIDOPA\FOSLEVODOPA
     Dosage: DOSAGE: CR: 0.24ML/H, CRH: 0.26ML/H, CRN: 0.16ML/H,FIRST AND LAST ADMINISTRATION DATE: 2025
     Route: 058
  17. FOSCARBIDOPA\FOSLEVODOPA [Suspect]
     Active Substance: FOSCARBIDOPA\FOSLEVODOPA
     Dosage: DOSAGE: CR: 0.30 ML/H, CRN: 0.24 ML/H, CRH: 0.32 ML/H, ED: 0.15 ML,FIRST ADMINISTRATION DATE: 2025
  18. FOSCARBIDOPA\FOSLEVODOPA [Suspect]
     Active Substance: FOSCARBIDOPA\FOSLEVODOPA
     Dosage: DOSAGE: CR: 0.30 ML/H, CRN: 0.24 ML/H, CRH: 0.32 ML/H, ED: 0.15 ML,FIRST ADMINISTRATION DATE: 2025
     Route: 058
  19. FOSCARBIDOPA\FOSLEVODOPA [Suspect]
     Active Substance: FOSCARBIDOPA\FOSLEVODOPA
     Dosage: DOSAGE: CR: 0.30 ML/H, CRN: 0.24 ML/H, CRH: 0.32 ML/H, ED: 0.15 ML,FIRST ADMINISTRATION DATE: 2025
  20. FOSCARBIDOPA\FOSLEVODOPA [Suspect]
     Active Substance: FOSCARBIDOPA\FOSLEVODOPA
     Dosage: DOSAGE: CR: 0.30 ML/H, CRN: 0.24 ML/H, CRH: 0.32 ML/H, ED: 0.15 ML,FIRST ADMINISTRATION DATE: 2025
     Route: 058
  21. FOSCARBIDOPA\FOSLEVODOPA [Suspect]
     Active Substance: FOSCARBIDOPA\FOSLEVODOPA
     Dosage: DOSAGE: CRN: 0.16 ML/H, CR: 0.20 ML/H, CRH: 0.22 ML/H, ED: 0.10 ML,LAST ADMIN: OCT 2025
  22. FOSCARBIDOPA\FOSLEVODOPA [Suspect]
     Active Substance: FOSCARBIDOPA\FOSLEVODOPA
     Dosage: DOSAGE: CRN: 0.16 ML/H, CR: 0.20 ML/H, CRH: 0.22 ML/H, ED: 0.10 ML,LAST ADMIN: OCT 2025
  23. FOSCARBIDOPA\FOSLEVODOPA [Suspect]
     Active Substance: FOSCARBIDOPA\FOSLEVODOPA
     Dosage: DOSAGE: CRN: 0.16 ML/H, CR: 0.20 ML/H, CRH: 0.22 ML/H, ED: 0.10 ML,LAST ADMIN: OCT 2025
     Route: 058
  24. FOSCARBIDOPA\FOSLEVODOPA [Suspect]
     Active Substance: FOSCARBIDOPA\FOSLEVODOPA
     Dosage: DOSAGE: CRN: 0.16 ML/H, CR: 0.20 ML/H, CRH: 0.22 ML/H, ED: 0.10 ML,LAST ADMIN: OCT 2025
     Route: 058
  25. CLONAZEPAM [Suspect]
     Active Substance: CLONAZEPAM
     Indication: Restlessness
     Dosage: 5 MILLIGRAM
     Route: 061
  26. CLONAZEPAM [Suspect]
     Active Substance: CLONAZEPAM
     Dosage: 5 MILLIGRAM
     Route: 048
  27. CLONAZEPAM [Suspect]
     Active Substance: CLONAZEPAM
     Dosage: 5 MILLIGRAM
     Route: 048
  28. CLONAZEPAM [Suspect]
     Active Substance: CLONAZEPAM
     Dosage: 5 MILLIGRAM
     Route: 061

REACTIONS (10)
  - Salivary hypersecretion [Not Recovered/Not Resolved]
  - On and off phenomenon [Not Recovered/Not Resolved]
  - General physical health deterioration [Not Recovered/Not Resolved]
  - Musculoskeletal stiffness [Not Recovered/Not Resolved]
  - Hallucination [Unknown]
  - Affect lability [Not Recovered/Not Resolved]
  - Movement disorder [Not Recovered/Not Resolved]
  - Mobility decreased [Not Recovered/Not Resolved]
  - Infusion site inflammation [Unknown]
  - Therapeutic product effect incomplete [Unknown]

NARRATIVE: CASE EVENT DATE: 20251024
